FAERS Safety Report 21043831 (Version 1)
Quarter: 2022Q3

REPORT INFORMATION
  Report Type: Spontaneous
  Country: AU (occurrence: AU)
  Receive Date: 20220705
  Receipt Date: 20220705
  Transmission Date: 20221026
  Serious: Yes (Hospitalization, Other)
  Sender: FDA-Public Use
  Company Number: AU-GLAXOSMITHKLINE-AU2022APC101155

PATIENT

DRUGS (3)
  1. SOTROVIMAB [Suspect]
     Active Substance: SOTROVIMAB
     Indication: COVID-19
     Dosage: UNK
     Dates: start: 20220104
  2. WARFARIN [Concomitant]
     Active Substance: WARFARIN
     Indication: Pulmonary embolism
     Dosage: UNK
  3. WARFARIN [Concomitant]
     Active Substance: WARFARIN
     Indication: Deep vein thrombosis

REACTIONS (2)
  - Cardiac arrest [Recovered/Resolved with Sequelae]
  - Wheezing [Unknown]

NARRATIVE: CASE EVENT DATE: 20220104
